FAERS Safety Report 9300917 (Version 1)
Quarter: 2013Q2

REPORT INFORMATION
  Report Type: Spontaneous
  Country: VN (occurrence: VN)
  Receive Date: 20130521
  Receipt Date: 20130521
  Transmission Date: 20140414
  Serious: Yes (Other)
  Sender: FDA-Public Use
  Company Number: VN-ASTRAZENECA-2013SE35081

PATIENT
  Sex: Male
  Weight: 45 kg

DRUGS (1)
  1. MERRONEM [Suspect]
     Dosage: 3 G/DAY, EVERY 8-12 HOURS
     Route: 041
     Dates: start: 20130415, end: 20130418

REACTIONS (2)
  - Convulsion [Recovered/Resolved]
  - Pyrexia [Recovered/Resolved]
